FAERS Safety Report 7559339-3 (Version None)
Quarter: 2011Q2

REPORT INFORMATION
  Report Type: 
  Country: None (occurrence: None)
  Receive Date: 20110621
  Receipt Date: 20110616
  Transmission Date: 20111010
  Serious: Yes (Other)
  Sender: FDA-Public Use
  Company Number: US-PFIZER INC-2011132853

PATIENT
  Age: 87 Year
  Sex: Female
  Weight: 72.562 kg

DRUGS (1)
  1. IBUPROFEN (ADVIL) [Suspect]
     Indication: HEADACHE
     Dosage: UNK, AS NEEDED
     Route: 048
     Dates: start: 20110501, end: 20110615

REACTIONS (4)
  - HYPOTENSION [None]
  - ASTHENIA [None]
  - ABDOMINAL PAIN UPPER [None]
  - TREMOR [None]
